FAERS Safety Report 4658669-2 (Version None)
Quarter: 2005Q2

REPORT INFORMATION
  Report Type: 
  Country: None (occurrence: None)
  Receive Date: 20050510
  Receipt Date: 20050510
  Transmission Date: 20051028
  Serious: No
  Sender: FDA-Public Use
  Company Number: None

PATIENT
  Age: 55 Year
  Sex: Male
  Weight: 70.3075 kg

DRUGS (6)
  1. CLOZAPINE [Suspect]
     Indication: PSYCHOTIC DISORDER
     Dosage: 350MG  BEDTIME  ORAL
     Route: 048
     Dates: start: 20050402, end: 20050424
  2. OLANZAPINE [Suspect]
     Indication: PSYCHOTIC DISORDER
     Dosage: 20MG  BEDTIME  ORAL
     Route: 048
     Dates: start: 20050402, end: 20050424
  3. FLUOXETINE [Concomitant]
  4. LORAZEPAM [Concomitant]
  5. MULTI-VITAMIN [Concomitant]
  6. RISPERIDONE [Concomitant]

REACTIONS (2)
  - HYPERHIDROSIS [None]
  - NEUROLEPTIC MALIGNANT SYNDROME [None]
